FAERS Safety Report 7082641-9 (Version None)
Quarter: 2010Q4

REPORT INFORMATION
  Report Type: 
  Country: None (occurrence: None)
  Receive Date: 20101104
  Receipt Date: 20101022
  Transmission Date: 20110411
  Serious: Yes (Death)
  Sender: FDA-Public Use
  Company Number: US-AMGEN-USASP2010001191

PATIENT

DRUGS (2)
  1. NPLATE [Suspect]
     Dates: start: 20090917, end: 20090924
  2. CORTICOSTEROIDS [Concomitant]

REACTIONS (1)
  - DEATH [None]
